FAERS Safety Report 24602541 (Version 1)
Quarter: 2024Q4

REPORT INFORMATION
  Report Type: Report from Study
  Country: AU (occurrence: AU)
  Receive Date: 20241111
  Receipt Date: 20241111
  Transmission Date: 20250115
  Serious: Yes (Other)
  Sender: EMD SERONO INC
  Company Number: AU-Merck Healthcare KGaA-2024058567

PATIENT
  Age: 41 Year
  Sex: Male

DRUGS (2)
  1. MAVENCLAD [Suspect]
     Active Substance: CLADRIBINE
     Indication: Multiple sclerosis
     Dosage: YEAR ONE THERAPY
     Route: 048
     Dates: start: 2019
  2. MAVENCLAD [Suspect]
     Active Substance: CLADRIBINE
     Dosage: YEAR TWO THERAPY
     Route: 048
     Dates: start: 2020

REACTIONS (7)
  - Coma [Recovered/Resolved]
  - Laryngeal cancer [Unknown]
  - Decreased appetite [Unknown]
  - Abnormal loss of weight [Unknown]
  - Metastases to lung [Unknown]
  - Gait disturbance [Unknown]
  - Joint range of motion decreased [Unknown]

NARRATIVE: CASE EVENT DATE: 20240701
